FAERS Safety Report 25964750 (Version 1)
Quarter: 2025Q4

REPORT INFORMATION
  Report Type: Spontaneous
  Country: US (occurrence: US)
  Receive Date: 20251027
  Receipt Date: 20251027
  Transmission Date: 20260118
  Serious: Yes (Other)
  Sender: TAIHO ONCOLOGY INC
  Company Number: US-TAIHOP-2025-011525

PATIENT
  Sex: Male

DRUGS (1)
  1. LYTGOBI [Suspect]
     Active Substance: FUTIBATINIB
     Indication: Product used for unknown indication
     Dosage: DOSE, FREQUENCY AND FORM STRENGTH UNKNOWN
     Route: 048

REACTIONS (8)
  - Subretinal fluid [Unknown]
  - Palmar-plantar erythrodysaesthesia syndrome [Unknown]
  - Onycholysis [Unknown]
  - Dry eye [Unknown]
  - Dry mouth [Unknown]
  - Fatigue [Unknown]
  - Back pain [Unknown]
  - Pain in extremity [Unknown]
